FAERS Safety Report 10742156 (Version 1)
Quarter: 2015Q1

REPORT INFORMATION
  Report Type: Report from Study
  Country: US (occurrence: US)
  Receive Date: 20150127
  Receipt Date: 20150127
  Transmission Date: 20150721
  Serious: No
  Sender: FDA-Public Use
  Company Number: US-AMGEN-USASL2015007013

PATIENT
  Age: 59 Year
  Sex: Female

DRUGS (1)
  1. ENBREL [Suspect]
     Active Substance: ETANERCEPT
     Indication: RHEUMATOID ARTHRITIS
     Dosage: 50 MG, QWK
     Route: 065
     Dates: start: 20130617

REACTIONS (7)
  - Oropharyngeal pain [Recovered/Resolved]
  - Eye pruritus [Recovered/Resolved]
  - Ear pain [Recovered/Resolved]
  - Nasal pruritus [Recovered/Resolved]
  - Hypoacusis [Not Recovered/Not Resolved]
  - Respiratory tract congestion [Recovered/Resolved]
  - Inner ear disorder [Not Recovered/Not Resolved]

NARRATIVE: CASE EVENT DATE: 20150108
